FAERS Safety Report 8193238-1 (Version None)
Quarter: 2012Q1

REPORT INFORMATION
  Report Type: 
  Country: None (occurrence: None)
  Receive Date: 20120308
  Receipt Date: 20120229
  Transmission Date: 20120608
  Serious: Yes (Life-Threatening, Other)
  Sender: FDA-Public Use
  Company Number: MA-ROXANE LABORATORIES, INC.-2012-RO-00751RO

PATIENT
  Age: 42 Year
  Sex: Male

DRUGS (2)
  1. CORTICOSTEROID [Suspect]
     Indication: PEMPHIGUS
     Dates: start: 20060101
  2. METHOTREXATE [Suspect]
     Indication: PEMPHIGUS
     Dates: start: 20060101

REACTIONS (6)
  - ASTHENIA [None]
  - VISCERAL LEISHMANIASIS [None]
  - HISTIOCYTOSIS HAEMATOPHAGIC [None]
  - DECREASED APPETITE [None]
  - SPLENOMEGALY [None]
  - PANCYTOPENIA [None]
